FAERS Safety Report 7306193-0 (Version None)
Quarter: 2011Q1

REPORT INFORMATION
  Report Type: 
  Country: None (occurrence: None)
  Receive Date: 20110222
  Receipt Date: 20110207
  Transmission Date: 20110831
  Serious: Yes (Other)
  Sender: FDA-Public Use
  Company Number: PHHY2011AU10290

PATIENT
  Age: 61 Year
  Sex: Female

DRUGS (3)
  1. CICLOSPORIN [Suspect]
     Indication: IMMUNOSUPPRESSION
  2. MYCOPHENOLATE MOFETIL [Suspect]
     Indication: IMMUNOSUPPRESSION
  3. PREDNISOLONE [Suspect]
     Indication: IMMUNOSUPPRESSION

REACTIONS (6)
  - POSTERIOR REVERSIBLE ENCEPHALOPATHY SYNDROME [None]
  - ATRIAL FIBRILLATION [None]
  - GRAFT DYSFUNCTION [None]
  - AGITATION [None]
  - COGNITIVE DISORDER [None]
  - HALLUCINATION [None]
